FAERS Safety Report 6066459-1 (Version None)
Quarter: 2009Q1

REPORT INFORMATION
  Report Type: 
  Country: None (occurrence: None)
  Receive Date: 20090203
  Receipt Date: 20090119
  Transmission Date: 20090719
  Serious: Yes (Other)
  Sender: FDA-Public Use
  Company Number: CCR-09-0002

PATIENT
  Sex: Female

DRUGS (1)
  1. AZO YEAST TABLETS [Suspect]
     Indication: VULVOVAGINAL MYCOTIC INFECTION
     Dosage: 1 TABLET DAILY

REACTIONS (2)
  - IDIOSYNCRATIC DRUG REACTION [None]
  - MIGRAINE [None]
